FAERS Safety Report 11696837 (Version 1)
Quarter: 2015Q4

REPORT INFORMATION
  Report Type: Spontaneous
  Country: US (occurrence: US)
  Receive Date: 20151104
  Receipt Date: 20151104
  Transmission Date: 20160304
  Serious: No
  Sender: FDA-Public Use
  Company Number: US-PERRIGO-15US008040

PATIENT
  Sex: Male

DRUGS (1)
  1. MESALAMINE RX 66.667 MG/ML WIPES 9J3 [Suspect]
     Active Substance: MESALAMINE
     Indication: PRODUCT USED FOR UNKNOWN INDICATION
     Dosage: UNKNOWN, UNKNOWN
     Route: 054
     Dates: start: 2013

REACTIONS (4)
  - Drug effect decreased [Unknown]
  - Drug ineffective [None]
  - Condition aggravated [Recovered/Resolved]
  - Product quality issue [None]

NARRATIVE: CASE EVENT DATE: 2013
